FAERS Safety Report 9015935 (Version 1)
Quarter: 2013Q1

REPORT INFORMATION
  Report Type: Report from Study
  Country: ZA (occurrence: ZA)
  Receive Date: 20130116
  Receipt Date: 20130116
  Transmission Date: 20140127
  Serious: Yes (Hospitalization)
  Sender: FDA-Public Use
  Company Number: ZA-PFIZER INC-2011007031

PATIENT
  Age: 8 Year
  Sex: Male

DRUGS (2)
  1. TALIGLUCERASE ALFA [Suspect]
     Indication: GAUCHER^S DISEASE
     Dosage: 30 OR 60 U/KG BLINDED EVERY 2 WEEKS
     Route: 042
     Dates: start: 20101208
  2. VITAMIN B12 FOR INJECTION [Concomitant]
     Dosage: 500 MCG SINGLE DOSE
     Dates: start: 20101208

REACTIONS (1)
  - Gastrointestinal inflammation [Recovered/Resolved]
